FAERS Safety Report 10430208 (Version 1)
Quarter: 2014Q3

REPORT INFORMATION
  Report Type: Spontaneous
  Country: US (occurrence: None)
  Receive Date: 20140903
  Receipt Date: 20140903
  Transmission Date: 20150326
  Serious: Yes (Death)
  Sender: FDA-Public Use
  Company Number: None

PATIENT
  Age: 64 Year
  Sex: Male

DRUGS (2)
  1. SOVALDI [Suspect]
     Active Substance: SOFOSBUVIR
     Route: 048
     Dates: start: 20140708, end: 20140820
  2. OLYSIO [Suspect]
     Active Substance: SIMEPREVIR
     Route: 048
     Dates: start: 20140708, end: 20140820

REACTIONS (2)
  - Fatigue [None]
  - Disease progression [None]

NARRATIVE: CASE EVENT DATE: 20140820
